FAERS Safety Report 14051944 (Version 1)
Quarter: 2017Q4

REPORT INFORMATION
  Report Type: Spontaneous
  Country: US (occurrence: US)
  Receive Date: 20171006
  Receipt Date: 20171006
  Transmission Date: 20180321
  Serious: No
  Sender: FDA-Public Use
  Company Number: US-PFIZER INC-2017428728

PATIENT
  Age: 90 Year
  Sex: Female
  Weight: 73.3 kg

DRUGS (1)
  1. IBRANCE [Suspect]
     Active Substance: PALBOCICLIB
     Indication: BREAST CANCER
     Dosage: 75MG CAPSULE ONE A DAY AT LUNCHTIME 21 DAYS ON AND 7 DAYS OFF
     Dates: end: 20170901

REACTIONS (3)
  - White blood cell count decreased [Unknown]
  - Fatigue [Recovered/Resolved]
  - Neoplasm progression [Unknown]

NARRATIVE: CASE EVENT DATE: 2017
